FAERS Safety Report 21458835 (Version 1)
Quarter: 2022Q4

REPORT INFORMATION
  Report Type: Spontaneous
  Country: US (occurrence: None)
  Receive Date: 20221013
  Receipt Date: 20221013
  Transmission Date: 20230112
  Serious: Yes (Other)
  Sender: FDA-Public Use
  Company Number: None

PATIENT
  Age: 34 Year
  Sex: Male
  Weight: 101.25 kg

DRUGS (1)
  1. ZYRTEC [Suspect]
     Active Substance: CETIRIZINE HYDROCHLORIDE
     Indication: Multiple allergies
     Dosage: OTHER QUANTITY : 90 TABLET(S);?FREQUENCY : DAILY;?
     Route: 048
     Dates: start: 20220922, end: 20221008

REACTIONS (11)
  - Depression [None]
  - Pruritus [None]
  - Urticaria [None]
  - Feeling abnormal [None]
  - Pruritus [None]
  - Pruritus [None]
  - Pharyngeal swelling [None]
  - Oropharyngeal pain [None]
  - Rhinalgia [None]
  - Nasal oedema [None]
  - Withdrawal syndrome [None]

NARRATIVE: CASE EVENT DATE: 20221008
